FAERS Safety Report 14541616 (Version 1)
Quarter: 2018Q1

REPORT INFORMATION
  Report Type: Spontaneous
  Country: US (occurrence: US)
  Receive Date: 20180216
  Receipt Date: 20180216
  Transmission Date: 20180509
  Serious: No
  Sender: FDA-Public Use
  Company Number: US-BIOGEN-2012BI041100

PATIENT
  Age: 44 Year
  Sex: Female

DRUGS (2)
  1. AVONEX [Suspect]
     Active Substance: INTERFERON BETA-1A
     Route: 030
     Dates: start: 20051014, end: 20150502
  2. AVONEX [Suspect]
     Active Substance: INTERFERON BETA-1A
     Indication: MULTIPLE SCLEROSIS
     Route: 030
     Dates: start: 20051014

REACTIONS (9)
  - Injury associated with device [Recovered/Resolved]
  - Gait disturbance [Not Recovered/Not Resolved]
  - Influenza like illness [Recovered/Resolved]
  - Radial nerve palsy [Not Recovered/Not Resolved]
  - Injection site pain [Recovered/Resolved]
  - Muscle spasms [Recovered/Resolved]
  - Myalgia [Recovered/Resolved]
  - Weight decreased [Recovered/Resolved]
  - Coordination abnormal [Not Recovered/Not Resolved]

NARRATIVE: CASE EVENT DATE: 2005
